FAERS Safety Report 7459657-3 (Version None)
Quarter: 2011Q2

REPORT INFORMATION
  Report Type: 
  Country: None (occurrence: None)
  Receive Date: 20110505
  Receipt Date: 20110428
  Transmission Date: 20111010
  Serious: Yes (Other)
  Sender: FDA-Public Use
  Company Number: PHHY2011US23964

PATIENT
  Sex: Male

DRUGS (6)
  1. ANTIASTHMATICS [Concomitant]
  2. RECLAST [Suspect]
     Dosage: ANNUALLY
     Dates: start: 20110221
  3. ANTIHYPERTENSIVES [Concomitant]
  4. CALCIUM [Concomitant]
  5. RECLAST [Suspect]
     Indication: OSTEOPOROSIS
     Dosage: 5 MG, UNK
     Route: 042
     Dates: start: 20091202
  6. FORTEO [Suspect]
     Indication: OSTEOPOROSIS
     Dosage: UNK

REACTIONS (8)
  - ASTHMA [None]
  - VOMITING [None]
  - ABDOMINAL PAIN UPPER [None]
  - PAIN [None]
  - ARTHRALGIA [None]
  - PYREXIA [None]
  - DEHYDRATION [None]
  - MALAISE [None]
